FAERS Safety Report 14654335 (Version 2)
Quarter: 2022Q1

REPORT INFORMATION
  Report Type: Spontaneous
  Country: JP (occurrence: JP)
  Receive Date: 20180319
  Receipt Date: 20220208
  Transmission Date: 20220424
  Serious: Yes (Hospitalization, Other)
  Sender: FDA-Public Use
  Company Number: PHJP2018JP002931

PATIENT
  Age: 33 Year
  Sex: Female
  Weight: 52.8 kg

DRUGS (19)
  1. DIOVAN [Interacting]
     Active Substance: VALSARTAN
     Indication: Hypertension
     Dosage: 80 MG, QD
     Route: 048
     Dates: end: 20170914
  2. DIOVAN [Interacting]
     Active Substance: VALSARTAN
     Dosage: 160 MG
     Route: 048
     Dates: start: 20170915, end: 20170916
  3. RIFAMPIN [Interacting]
     Active Substance: RIFAMPIN
     Indication: Tuberculosis
     Dosage: 450 MG
     Route: 048
     Dates: start: 20170913, end: 20170926
  4. NIFEDIPINE [Interacting]
     Active Substance: NIFEDIPINE
     Indication: Hypertension
     Dosage: 40 MG
     Route: 048
     Dates: end: 20170914
  5. NIFEDIPINE [Interacting]
     Active Substance: NIFEDIPINE
     Dosage: 80 MG
     Route: 048
     Dates: start: 20170915
  6. NIFEDIPINE [Interacting]
     Active Substance: NIFEDIPINE
     Dosage: 40 MG
     Route: 048
  7. ISONIAZID [Concomitant]
     Active Substance: ISONIAZID
     Indication: Tuberculosis
     Dosage: 300 MG
     Route: 065
     Dates: start: 20170913, end: 20170918
  8. ISONIAZID [Concomitant]
     Active Substance: ISONIAZID
     Dosage: 100 MG
     Route: 065
  9. ETHAMBUTOL HYDROCHLORIDE [Concomitant]
     Active Substance: ETHAMBUTOL HYDROCHLORIDE
     Indication: Tuberculosis
     Dosage: 1000 MG
     Route: 065
     Dates: start: 20170913, end: 20170917
  10. PYRAZINAMIDE [Concomitant]
     Active Substance: PYRAZINAMIDE
     Indication: Tuberculosis
     Dosage: UNK
     Route: 065
  11. RIFABUTIN [Concomitant]
     Active Substance: RIFABUTIN
     Indication: Tuberculosis
     Dosage: UNK
     Route: 065
     Dates: start: 201710
  12. LISINOPRIL [Concomitant]
     Active Substance: LISINOPRIL
     Indication: Hypertension
     Dosage: 10 MG
     Route: 048
  13. LISINOPRIL [Concomitant]
     Active Substance: LISINOPRIL
     Dosage: 10 MG
     Route: 048
  14. AMLODIPINE BESYLATE [Concomitant]
     Active Substance: AMLODIPINE BESYLATE
     Indication: Hypertension
     Dosage: 10 MG
     Route: 048
  15. ENALAPRIL MALEATE [Concomitant]
     Active Substance: ENALAPRIL MALEATE
     Indication: Hypertension
     Dosage: 5 MG
     Route: 065
     Dates: start: 20170915
  16. DIAZEPAM [Concomitant]
     Active Substance: DIAZEPAM
     Indication: Seizure
     Dosage: 2.5 MG
     Route: 042
     Dates: start: 20170918
  17. AMPICILLIN AND SULBACTAM [Concomitant]
     Active Substance: AMPICILLIN SODIUM\SULBACTAM SODIUM
     Indication: Bacterial infection
     Dosage: 3 G
     Route: 065
     Dates: start: 20170918
  18. ACETAMINOPHEN [Concomitant]
     Active Substance: ACETAMINOPHEN
     Indication: Pyrexia
     Dosage: 800 MG
     Route: 041
     Dates: start: 20170919
  19. VALPROATE SODIUM [Concomitant]
     Active Substance: VALPROATE SODIUM
     Indication: Epilepsy
     Dosage: 200 MG
     Route: 065

REACTIONS (3)
  - Hypertension [Recovering/Resolving]
  - Drug interaction [Recovering/Resolving]
  - Therapeutic response decreased [Recovering/Resolving]

NARRATIVE: CASE EVENT DATE: 20170916
